FAERS Safety Report 10061347 (Version 2)
Quarter: 2017Q4

REPORT INFORMATION
  Report Type: Spontaneous
  Country: CA (occurrence: CA)
  Receive Date: 20140407
  Receipt Date: 20171221
  Transmission Date: 20180320
  Serious: Yes (Life-Threatening)
  Sender: FDA-Public Use
  Company Number: CA-009507513-1404CAN002204

PATIENT
  Age: 15 Year
  Sex: Male

DRUGS (4)
  1. SINGULAIR [Suspect]
     Active Substance: MONTELUKAST SODIUM
     Indication: ASTHMA
     Dosage: 10.0 MG, QD
     Route: 048
  2. ADVAIR HFA [Concomitant]
     Active Substance: FLUTICASONE PROPIONATE\SALMETEROL XINAFOATE
     Route: 065
  3. FLOVENT [Concomitant]
     Active Substance: FLUTICASONE PROPIONATE
     Route: 065
  4. VENTOLIN [Concomitant]
     Active Substance: ALBUTEROL SULFATE
     Route: 065

REACTIONS (7)
  - Suicide attempt [Unknown]
  - Agitation [Unknown]
  - Suicidal ideation [Unknown]
  - Obsessive thoughts [Unknown]
  - Anxiety [Unknown]
  - Affect lability [Unknown]
  - Negative thoughts [Unknown]

NARRATIVE: CASE EVENT DATE: 2012
